FAERS Safety Report 18248576 (Version 1)
Quarter: 2020Q3

REPORT INFORMATION
  Report Type: Spontaneous
  Country: ES (occurrence: ES)
  Receive Date: 20200909
  Receipt Date: 20200909
  Transmission Date: 20201103
  Serious: Yes (Life-Threatening, Hospitalization)
  Sender: FDA-Public Use
  Company Number: ES-MYLANLABS-2020M1076450

PATIENT
  Age: 84 Year
  Sex: Male
  Weight: 60 kg

DRUGS (11)
  1. TRAMADOL ASTA MEDICA 100 MG SOLUCI?N INYECTABLE EFG [Suspect]
     Active Substance: TRAMADOL
     Indication: HEAD INJURY
     Dosage: 1 DOSAGE FORM, TOTAL (DOSIS UNICA)
     Route: 042
     Dates: start: 20200813, end: 20200813
  2. SPIRIVA RESPIMAT [Concomitant]
     Active Substance: TIOTROPIUM BROMIDE
     Dosage: UNK (SOLUCION PARA INHALACION, 1 CARTUCHO DE 60 PULSACIONES (30 DOSIS))
  3. DOXAZOSINA                         /00639301/ [Concomitant]
     Active Substance: DOXAZOSIN MESYLATE
     Dosage: UNK (28 COMPRIMIDOS)
  4. FUROSEMIDA                         /00032601/ [Concomitant]
     Active Substance: FUROSEMIDE
     Dosage: UNK (30 COMPRIMIDOS)
  5. TRAMADOL/PARACETAMOL [Concomitant]
     Active Substance: ACETAMINOPHEN\TRAMADOL
     Dosage: UNK (60 COMPRIMIDOS)
  6. SALBUTAMOL [Concomitant]
     Active Substance: ALBUTEROL
     Dosage: UNK ( INHALACION PULMONAR)
  7. OXIGENO MEDICINAL [Concomitant]
     Dosage: UNK
  8. NEXIUM MUPS                        /01479302/ [Concomitant]
     Active Substance: ESOMEPRAZOLE MAGNESIUM
     Dosage: UNK
  9. LOSARTAN. [Concomitant]
     Active Substance: LOSARTAN
     Dosage: UNK
  10. COMBIPRASAL [Concomitant]
     Active Substance: ALBUTEROL SULFATE\IPRATROPIUM BROMIDE
     Dosage: UNK (SOLUCION PARA INHALACION POR NEBULIZADOR 20 AMPOLLAS DE 2,5 ML)
  11. SERETIDE [Concomitant]
     Active Substance: FLUTICASONE PROPIONATE\SALMETEROL XINAFOATE
     Dosage: UNK (SUSPENSION PARA INHALACION EN ENVASE A PRESION , 1 INHALADOR DE 120 DOSIS)

REACTIONS (1)
  - Cardio-respiratory arrest [Recovered/Resolved]

NARRATIVE: CASE EVENT DATE: 20200813
